FAERS Safety Report 7906839-X (Version None)
Quarter: 2011Q4

REPORT INFORMATION
  Report Type: 
  Country: None (occurrence: None)
  Receive Date: 20111110
  Receipt Date: 20111108
  Transmission Date: 20120403
  Serious: Yes (Death, Hospitalization, Other)
  Sender: FDA-Public Use
  Company Number: JP-ABBOTT-09P-087-0604327-00

PATIENT
  Sex: Female
  Weight: 42.5 kg

DRUGS (6)
  1. METHYLPREDNISOLONE [Concomitant]
     Dosage: 1.5 MG DAILY
     Route: 048
     Dates: start: 20090722, end: 20090908
  2. METHYLPREDNISOLONE [Concomitant]
     Indication: RHEUMATOID ARTHRITIS
     Route: 048
     Dates: start: 20090721, end: 20090721
  3. REBAMIPIDE [Concomitant]
     Indication: GASTRITIS PROPHYLAXIS
     Dates: end: 20090908
  4. METHOTREXATE [Concomitant]
     Indication: RHEUMATOID ARTHRITIS
     Route: 048
     Dates: start: 20070928, end: 20090908
  5. FOLIC ACID [Concomitant]
     Indication: VITAMIN SUPPLEMENTATION
     Dates: end: 20090908
  6. HUMIRA [Suspect]
     Indication: RHEUMATOID ARTHRITIS
     Route: 058
     Dates: start: 20090616, end: 20090908

REACTIONS (10)
  - PULMONARY TUBERCULOSIS [None]
  - DEMENTIA ALZHEIMER'S TYPE [None]
  - PULMONARY GRANULOMA [None]
  - FALL [None]
  - ATELECTASIS [None]
  - BLOOD BILIRUBIN ABNORMAL [None]
  - HYPOALBUMINAEMIA [None]
  - DEHYDRATION [None]
  - HEPATIC FAILURE [None]
  - PLEURAL EFFUSION [None]
